FAERS Safety Report 10884419 (Version 2)
Quarter: 2015Q1

REPORT INFORMATION
  Report Type: Spontaneous
  Country: NL (occurrence: None)
  Receive Date: 20150227
  Receipt Date: 20150324
  Transmission Date: 20150721
  Serious: Yes (Other)
  Sender: FDA-Public Use
  Company Number: 2015NL001682

PATIENT
  Sex: Male

DRUGS (6)
  1. ASCAL (ACETYLSALICYLATE CALCIUM) [Concomitant]
  2. ELIGARD [Suspect]
     Active Substance: LEUPROLIDE ACETATE
     Indication: PROSTATE CANCER
     Dosage: EVERY SIX MONTHS
     Route: 058
     Dates: start: 20130823
  3. AMLODIPINE [Concomitant]
     Active Substance: AMLODIPINE BESYLATE
  4. BISOPROLOL [Concomitant]
     Active Substance: BISOPROLOL
  5. VALSARTAN. [Concomitant]
     Active Substance: VALSARTAN
  6. PANTOPRAZOLE [Concomitant]
     Active Substance: PANTOPRAZOLE SODIUM

REACTIONS (4)
  - Cerebral infarction [None]
  - Memory impairment [None]
  - Drug ineffective [None]
  - Hypokalaemia [None]

NARRATIVE: CASE EVENT DATE: 2013
